FAERS Safety Report 18187519 (Version 1)
Quarter: 2020Q3

REPORT INFORMATION
  Report Type: Other
  Country: DE (occurrence: DE)
  Receive Date: 20200824
  Receipt Date: 20200824
  Transmission Date: 20201103
  Serious: Yes (Hospitalization)
  Sender: FDA-Public Use
  Company Number: DE-MACLEODS PHARMACEUTICALS US LTD-MAC2020027759

PATIENT

DRUGS (8)
  1. HYDROCHLOROTHIAZID [Interacting]
     Active Substance: HYDROCHLOROTHIAZIDE
     Indication: PRODUCT USED FOR UNKNOWN INDICATION
     Dosage: 12.5 MILLIGRAM, QD, 1?0?0?0
     Route: 048
  2. AMLODIPINE 10 MG TABLET [Suspect]
     Active Substance: AMLODIPINE BESYLATE
     Indication: PRODUCT USED FOR UNKNOWN INDICATION
     Dosage: 10 MILLIGRAM, QD, 1?0?0?0
     Route: 048
  3. FINASTERIDE. [Interacting]
     Active Substance: FINASTERIDE
     Indication: PRODUCT USED FOR UNKNOWN INDICATION
     Dosage: 5 MILLIGRAM, QD, 0?0?1?0
     Route: 048
  4. TAMSULOSIN 0.4 MG [Interacting]
     Active Substance: TAMSULOSIN
     Indication: PRODUCT USED FOR UNKNOWN INDICATION
     Dosage: 0.4 MILLIGRAM, QD, 0?0?1?0, TABLET
     Route: 048
  5. DULOXETINE 30 MG [Interacting]
     Active Substance: DULOXETINE
     Indication: PRODUCT USED FOR UNKNOWN INDICATION
     Dosage: 30 MILLIGRAM, BID, 1?0?1?0, TABLET
     Route: 048
  6. VALSARTAN TABLET 160MG [Interacting]
     Active Substance: VALSARTAN
     Indication: PRODUCT USED FOR UNKNOWN INDICATION
     Dosage: 160 MILLIGRAM, QD, 1?0?0?0
     Route: 048
  7. BISOPROLOL 5 MG TABLET [Interacting]
     Active Substance: BISOPROLOL
     Indication: PRODUCT USED FOR UNKNOWN INDICATION
     Dosage: 5 MILLIGRAM, QD, 1?0?0?0
     Route: 048
  8. MOXONIDIN [Interacting]
     Active Substance: MOXONIDINE
     Indication: PRODUCT USED FOR UNKNOWN INDICATION
     Dosage: 0.3 MILLIGRAM, QD, 1?0?0?0
     Route: 048

REACTIONS (8)
  - Hypotension [Recovering/Resolving]
  - General physical health deterioration [Recovering/Resolving]
  - Renal impairment [Recovering/Resolving]
  - Vertigo [Recovering/Resolving]
  - Gait disturbance [Recovering/Resolving]
  - Dizziness [Recovering/Resolving]
  - Feeling hot [Recovering/Resolving]
  - Labelled drug-drug interaction medication error [Unknown]
